FAERS Safety Report 23376755 (Version 1)
Quarter: 2024Q1

REPORT INFORMATION
  Report Type: Spontaneous
  Country: US (occurrence: US)
  Receive Date: 20240108
  Receipt Date: 20240108
  Transmission Date: 20240410
  Serious: No
  Sender: FDA-Public Use
  Company Number: US-OPELLA-2023OHG021142

PATIENT
  Age: 89 Year
  Sex: Male

DRUGS (1)
  1. DULCOLAX LAXATIVE [Suspect]
     Active Substance: BISACODYL
     Indication: Gastrointestinal motility disorder

REACTIONS (2)
  - Drug ineffective [Unknown]
  - No adverse event [Unknown]
